FAERS Safety Report 16386954 (Version 2)
Quarter: 2020Q3

REPORT INFORMATION
  Report Type: Spontaneous
  Country: HU (occurrence: HU)
  Receive Date: 20190604
  Receipt Date: 20190612
  Transmission Date: 20201105
  Serious: Yes (Hospitalization)
  Sender: FDA-Public Use
  Company Number: HU-ROCHE-2322731

PATIENT
  Sex: Female

DRUGS (8)
  1. CAVINTON [Concomitant]
     Active Substance: VINPOCETINE
     Indication: PRODUCT USED FOR UNKNOWN INDICATION
     Dosage: 2 DOSAGE FORMS,1 IN 1 D
     Route: 065
  2. COVEREX [Concomitant]
     Active Substance: PERINDOPRIL ERBUMINE
     Indication: PRODUCT USED FOR UNKNOWN INDICATION
  3. ALENDRONAT [Concomitant]
     Active Substance: ALENDRONATE SODIUM
     Indication: OSTEOPOROSIS
  4. IBANDRONIC ACID. [Suspect]
     Active Substance: IBANDRONIC ACID
     Indication: OSTEOPOROSIS
     Route: 042
     Dates: start: 201403
  5. FRONTIN [Concomitant]
     Active Substance: ALPRAZOLAM
     Route: 065
  6. NEBIVOLOL. [Suspect]
     Active Substance: NEBIVOLOL
     Indication: PRODUCT USED FOR UNKNOWN INDICATION
     Route: 065
  7. XETER [Concomitant]
     Active Substance: ROSUVASTATIN CALCIUM
     Indication: PRODUCT USED FOR UNKNOWN INDICATION
     Route: 065
  8. ASA [Concomitant]
     Active Substance: ASPIRIN
     Indication: PRODUCT USED FOR UNKNOWN INDICATION

REACTIONS (5)
  - Osteoporosis [Unknown]
  - Femur fracture [Recovered/Resolved]
  - Fall [Unknown]
  - Hypertension [Unknown]
  - Dyspnoea exertional [Unknown]

NARRATIVE: CASE EVENT DATE: 20160923
